FAERS Safety Report 12909592 (Version 4)
Quarter: 2017Q1

REPORT INFORMATION
  Report Type: Spontaneous
  Country: AU (occurrence: AU)
  Receive Date: 20161104
  Receipt Date: 20170217
  Transmission Date: 20170428
  Serious: Yes (Death, Life-Threatening, Hospitalization)
  Sender: FDA-Public Use
  Company Number: AU-B.I. PHARMACEUTICALS,INC./RIDGEFIELD-2016-BI-068529

PATIENT
  Age: 85 Year
  Sex: Male

DRUGS (1)
  1. PRADAXA [Suspect]
     Active Substance: DABIGATRAN ETEXILATE MESYLATE
     Indication: ATRIAL FIBRILLATION
     Route: 065

REACTIONS (11)
  - Cerebral artery occlusion [Unknown]
  - General physical health deterioration [Unknown]
  - Cerebral infarction [Unknown]
  - Patient dissatisfaction with treatment [Unknown]
  - Cerebrovascular accident [Unknown]
  - Malaise [Unknown]
  - Infarction [Unknown]
  - Death [Fatal]
  - Ischaemic stroke [Unknown]
  - Carotid artery occlusion [Unknown]
  - Haemorrhage [Unknown]

NARRATIVE: CASE EVENT DATE: 20161019
